FAERS Safety Report 16543040 (Version 1)
Quarter: 2019Q3

REPORT INFORMATION
  Report Type: Spontaneous
  Country: DE (occurrence: DE)
  Receive Date: 20190709
  Receipt Date: 20190709
  Transmission Date: 20191004
  Serious: Yes (Death, Hospitalization)
  Sender: FDA-Public Use
  Company Number: DE-TEVA-2019-DE-1074129

PATIENT
  Age: 80 Year
  Sex: Male

DRUGS (13)
  1. DEXAMETHASON [Concomitant]
     Active Substance: DEXAMETHASONE
     Dosage: 4 MG, 1-1-1-0
  2. SULTANOL [Concomitant]
     Active Substance: ALBUTEROL SULFATE
     Dosage: NK MG, 3X3, DROPS
     Route: 055
  3. TORASEMID [Concomitant]
     Active Substance: TORSEMIDE
     Dosage: 10 MG, 1-0-0-0
  4. CISPLATIN. [Suspect]
     Active Substance: CISPLATIN
     Dosage: NK MG, NK
     Route: 065
  5. ASS 100 [Concomitant]
     Active Substance: ASPIRIN
     Dosage: 100 MG, PAUSED
  6. BISOPROLOL [Concomitant]
     Active Substance: BISOPROLOL
     Dosage: 5 MG, 1-0-1-0
  7. ETOPOSID [Suspect]
     Active Substance: ETOPOSIDE
     Dosage: NK MG, NK
     Route: 065
  8. ZOFRAN [Concomitant]
     Active Substance: ONDANSETRON HYDROCHLORIDE
     Dosage: 8 MG, DEMAND
  9. LEVEMIR [Concomitant]
     Active Substance: INSULIN DETEMIR
     Dosage: 18 IE, 0-0-0-1 19:00
  10. AMITRIPTYLIN [Concomitant]
     Active Substance: AMITRIPTYLINE
     Dosage: 25 MG, 0-0-1-0
  11. ATROVENT [Concomitant]
     Active Substance: IPRATROPIUM BROMIDE
     Dosage: NK MG, 3X20
     Route: 055
  12. ACTRAPID [Concomitant]
     Active Substance: INSULIN HUMAN
     Dosage: NK IE, BY SCHEME
  13. ATORVASTATIN [Concomitant]
     Active Substance: ATORVASTATIN
     Dosage: 20 MG, 0-0-1-0

REACTIONS (3)
  - General physical health deterioration [Fatal]
  - Asthenia [Fatal]
  - Nausea [Fatal]
